FAERS Safety Report 24824529 (Version 1)
Quarter: 2025Q1

REPORT INFORMATION
  Report Type: Spontaneous
  Country: IN (occurrence: None)
  Receive Date: 20250109
  Receipt Date: 20250109
  Transmission Date: 20250408
  Serious: Yes (Death, Hospitalization, Other)
  Sender: UNICHEM
  Company Number: IN-Unichem Pharmaceuticals (USA) Inc-UCM202412-001792

PATIENT
  Age: 50 Year
  Sex: Female

DRUGS (1)
  1. AMLODIPINE [Suspect]
     Active Substance: AMLODIPINE BESYLATE
     Indication: Product used for unknown indication

REACTIONS (12)
  - Metabolic acidosis [Unknown]
  - Hyperhidrosis [Unknown]
  - Hypoaesthesia [Unknown]
  - Shock [Unknown]
  - Paraesthesia [Unknown]
  - Acute kidney injury [Unknown]
  - Pulmonary oedema [Unknown]
  - Dizziness [Unknown]
  - Cardiac arrest [Fatal]
  - Vomiting [Unknown]
  - Overdose [Unknown]
  - Toxicity to various agents [Unknown]
